FAERS Safety Report 22077434 (Version 2)
Quarter: 2023Q4

REPORT INFORMATION
  Report Type: Spontaneous
  Country: US (occurrence: US)
  Receive Date: 20230309
  Receipt Date: 20231019
  Transmission Date: 20240109
  Serious: Yes (Other)
  Sender: FDA-Public Use
  Company Number: US-JNJFOC-20230315654

PATIENT
  Age: 63 Year
  Sex: Female

DRUGS (1)
  1. ELMIRON [Suspect]
     Active Substance: PENTOSAN POLYSULFATE SODIUM
     Indication: Cystitis interstitial
     Dosage: ALSO REPORTED AS 2008
     Route: 048
     Dates: start: 2007, end: 20210112

REACTIONS (4)
  - Dry age-related macular degeneration [Unknown]
  - Maculopathy [Unknown]
  - Retinal degeneration [Unknown]
  - Toxicity to various agents [Unknown]

NARRATIVE: CASE EVENT DATE: 20180101
